FAERS Safety Report 10374150 (Version 2)
Quarter: 2014Q3

REPORT INFORMATION
  Report Type: Report from Study
  Country: JP (occurrence: JP)
  Receive Date: 20140811
  Receipt Date: 20140811
  Transmission Date: 20150326
  Serious: Yes (Other)
  Sender: FDA-Public Use
  Company Number: JP-ROCHE-1418496

PATIENT
  Age: 75 Year
  Sex: Female

DRUGS (21)
  1. METHOXY POLYETHYLENE GLYCOL-EPOETIN BETA [Suspect]
     Active Substance: PEGZEREPOETIN ALFA
     Indication: NEPHROGENIC ANAEMIA
     Route: 058
     Dates: start: 20131114, end: 20131114
  2. KREMEZIN [Concomitant]
     Active Substance: ACTIVATED CHARCOAL
     Indication: NEPHROSCLEROSIS
     Route: 048
     Dates: start: 20140109
  3. MEILAX [Concomitant]
     Active Substance: ETHYL LOFLAZEPATE
     Route: 048
     Dates: start: 20140418
  4. SODIUM BICARBONATE. [Concomitant]
     Active Substance: SODIUM BICARBONATE
     Route: 048
  5. RIZE [Concomitant]
     Active Substance: CLOTIAZEPAM
     Route: 048
  6. MUCOSOLVAN [Concomitant]
     Active Substance: AMBROXOL\CLENBUTEROL
     Route: 048
     Dates: end: 20140412
  7. FLUITRAN [Concomitant]
     Active Substance: TRICHLORMETHIAZIDE
     Route: 048
  8. ROCORNAL [Concomitant]
     Route: 048
  9. OLMETEC [Concomitant]
     Active Substance: OLMESARTAN MEDOXOMIL
     Route: 048
  10. ALLOPURINOL. [Concomitant]
     Active Substance: ALLOPURINOL
     Route: 048
     Dates: end: 20140313
  11. ALDOMET [Concomitant]
     Active Substance: METHYLDOPA
     Route: 048
     Dates: end: 20140508
  12. PRECIPITATED CALCIUM CARBONATE [Concomitant]
     Active Substance: CALCIUM CARBONATE
     Route: 048
  13. ALFAROL [Concomitant]
     Active Substance: ALFACALCIDOL
     Route: 048
  14. MERCAZOLE [Concomitant]
     Active Substance: CARBIMAZOLE
     Route: 048
  15. MAINTATE [Concomitant]
     Active Substance: BISOPROLOL FUMARATE
     Route: 048
     Dates: start: 20131212
  16. ROZEREM [Concomitant]
     Active Substance: RAMELTEON
     Route: 048
  17. METHOXY POLYETHYLENE GLYCOL-EPOETIN BETA [Suspect]
     Active Substance: PEGZEREPOETIN ALFA
     Indication: NEPHROGENIC ANAEMIA
     Route: 042
     Dates: start: 20131212
  18. LENDORMIN [Concomitant]
     Active Substance: BROTIZOLAM
     Route: 048
     Dates: end: 20140523
  19. LASIX [Concomitant]
     Active Substance: FUROSEMIDE
     Route: 048
  20. WARFARIN [Concomitant]
     Active Substance: WARFARIN
     Route: 048
     Dates: start: 20140227
  21. POTASSIUM IODIDE [Concomitant]
     Active Substance: POTASSIUM IODIDE
     Route: 048
     Dates: start: 20140410, end: 20140508

REACTIONS (6)
  - Hyperthyroidism [Recovered/Resolved]
  - Blood albumin decreased [Recovered/Resolved]
  - Cardiac failure [Recovering/Resolving]
  - Anaemia [Recovered/Resolved]
  - Basedow^s disease [Recovered/Resolved]
  - Femur fracture [Not Recovered/Not Resolved]

NARRATIVE: CASE EVENT DATE: 20140109
